FAERS Safety Report 14576136 (Version 1)
Quarter: 2018Q1

REPORT INFORMATION
  Report Type: Spontaneous
  Country: SE (occurrence: SE)
  Receive Date: 20180227
  Receipt Date: 20180227
  Transmission Date: 20180509
  Serious: Yes (Other)
  Sender: FDA-Public Use
  Company Number: SE-CIPLA LTD.-2018SE07829

PATIENT

DRUGS (1)
  1. WARFARIN [Suspect]
     Active Substance: WARFARIN
     Dosage: UNK
     Route: 063

REACTIONS (4)
  - Hepatic enzyme increased [Recovered/Resolved]
  - Serum ferritin increased [Recovered/Resolved]
  - Haematochezia [Recovered/Resolved]
  - Maternal exposure during breast feeding [Recovered/Resolved]
